FAERS Safety Report 4696778-2 (Version None)
Quarter: 2005Q2

REPORT INFORMATION
  Report Type: 
  Country: None (occurrence: None)
  Receive Date: 20050620
  Receipt Date: 20050610
  Transmission Date: 20051028
  Serious: Yes (Hospitalization)
  Sender: FDA-Public Use
  Company Number: 2005-06-0603

PATIENT
  Age: 30 Year
  Sex: Male
  Weight: 88 kg

DRUGS (2)
  1. VIRAFERONPEG [Suspect]
     Indication: HEPATITIS C
     Dosage: 135-120 UGQW SUBCUTANEOUS`
     Route: 058
     Dates: start: 20050101
  2. REBETOL [Suspect]
     Indication: HEPATITIS C
     Dosage: ORAL
     Route: 048
     Dates: start: 20050101

REACTIONS (3)
  - ARTHRALGIA [None]
  - PERICARDITIS [None]
  - WEIGHT DECREASED [None]
